FAERS Safety Report 8369922-3 (Version None)
Quarter: 2012Q1

REPORT INFORMATION
  Report Type: 
  Country: None (occurrence: None)
  Receive Date: 20120323
  Receipt Date: 20110705
  Transmission Date: 20120608
  Serious: Yes (Hospitalization)
  Sender: FDA-Public Use
  Company Number: 163-21880-11070452

PATIENT
  Age: 90 Year
  Sex: Male

DRUGS (21)
  1. NICOTINAMIDE [Concomitant]
  2. METOPROLOL TARTRATE [Concomitant]
  3. LIPITOR [Concomitant]
  4. CEPHALEXIN [Concomitant]
  5. REVLIMID [Suspect]
     Indication: MYELODYSPLASTIC SYNDROME
     Dosage: 10 MG, EVERY WEEK, PO
     Route: 048
     Dates: start: 20070501
  6. FOLIC ACID [Concomitant]
  7. CHLORHEXIDINE GLUCONATE [Concomitant]
  8. ERYTHROMYCIN [Concomitant]
  9. MELATONIN (MELATONIN) [Concomitant]
  10. PREDNISONE TAB [Concomitant]
  11. PLAVIX [Concomitant]
  12. CALCIUM +D (OS-CAL) [Concomitant]
  13. FUROSEMIDE [Concomitant]
  14. HEPARIN LOCK (HEPARIN) [Concomitant]
  15. ALLOPURINOL [Concomitant]
  16. METAMUCIL (METAMUCIL ^PROCTOR + GAMBLE^) [Concomitant]
  17. MEGESTROL ACETATE [Concomitant]
  18. NITROQUICK (GLYCERYL TRINITRATE) [Concomitant]
  19. PROTONIX [Concomitant]
  20. PANDEL [Concomitant]
  21. AMIODARONE HCL [Concomitant]

REACTIONS (4)
  - FATIGUE [None]
  - CELLULITIS [None]
  - FLUID RETENTION [None]
  - HYPERSOMNIA [None]
